FAERS Safety Report 21605613 (Version 2)
Quarter: 2022Q4

REPORT INFORMATION
  Report Type: Spontaneous
  Country: US (occurrence: US)
  Receive Date: 20221116
  Receipt Date: 20221219
  Transmission Date: 20230112
  Serious: No
  Sender: FDA-Public Use
  Company Number: US-ALKERMES INC.-ALK-2022-005551

PATIENT
  Age: 34 Year
  Sex: Female
  Weight: 117.46 kg

DRUGS (5)
  1. LYBALVI [Suspect]
     Active Substance: OLANZAPINE\SAMIDORPHAN L-MALATE
     Indication: Schizophrenia
     Dosage: 20/10 MILLIGRAM, QD
     Route: 048
     Dates: start: 20221011, end: 20221012
  2. HALOPERIDOL [Concomitant]
     Active Substance: HALOPERIDOL
     Indication: Schizophrenia
     Dosage: 100 MILLIGRAM
     Route: 030
     Dates: start: 20220310
  3. HALOPERIDOL DECANOATE [Concomitant]
     Active Substance: HALOPERIDOL DECANOATE
     Indication: Extrapyramidal disorder
     Dosage: UNK, Q3WK
     Route: 030
     Dates: start: 20220310
  4. BENZTROPINE [Concomitant]
     Active Substance: BENZTROPINE
     Indication: Product used for unknown indication
     Dosage: 1 MILLIGRAM, BID
     Route: 048
     Dates: start: 20220310
  5. LITHIUM CARBONATE [Concomitant]
     Active Substance: LITHIUM CARBONATE
     Indication: Schizophrenia
     Dosage: 1800 MILLIGRAM, HS
     Route: 048
     Dates: start: 20220310

REACTIONS (3)
  - Nightmare [Recovered/Resolved]
  - Agitation [Unknown]
  - Feeling abnormal [Recovered/Resolved]

NARRATIVE: CASE EVENT DATE: 20221011
